FAERS Safety Report 25623058 (Version 1)
Quarter: 2025Q3

REPORT INFORMATION
  Report Type: Spontaneous
  Country: US (occurrence: US)
  Receive Date: 20250730
  Receipt Date: 20250730
  Transmission Date: 20251021
  Serious: No
  Sender: GALPHARM INTERNATIONAL
  Company Number: US-PERRIGO-25US006907

PATIENT
  Age: 65 Year
  Sex: Male
  Weight: 71.202 kg

DRUGS (2)
  1. LORATADINE [Suspect]
     Active Substance: LORATADINE
     Indication: Hypersensitivity
     Dosage: 10 MG, QD
     Route: 048
     Dates: start: 20250514, end: 20250527
  2. LORATADINE [Suspect]
     Active Substance: LORATADINE
     Dosage: 10 MG, BID
     Route: 048
     Dates: start: 20250528

REACTIONS (2)
  - Drug ineffective [Unknown]
  - Inappropriate schedule of product administration [Not Recovered/Not Resolved]

NARRATIVE: CASE EVENT DATE: 20250514
